FAERS Safety Report 7361071-6 (Version None)
Quarter: 2011Q1

REPORT INFORMATION
  Report Type: 
  Country: None (occurrence: None)
  Receive Date: 20110318
  Receipt Date: 20110217
  Transmission Date: 20110831
  Serious: No
  Sender: FDA-Public Use
  Company Number: US-BAYER-2011-016395

PATIENT
  Sex: Female
  Weight: 54 kg

DRUGS (4)
  1. VITAMIN D [Concomitant]
     Dosage: UNK, QD
     Route: 048
  2. CALCIUM [CALCIUM GLUBIONATE] [Concomitant]
     Dosage: UNK UNK, QD
     Route: 048
  3. ALEVE (CAPLET) [Suspect]
     Indication: BACK PAIN
     Dosage: 2 DF, BID
     Route: 048
  4. UNKNOWN DRUG [Concomitant]
     Dosage: 50 MG, QD
     Route: 048

REACTIONS (1)
  - OVERDOSE [None]
